FAERS Safety Report 4688807-7 (Version None)
Quarter: 2005Q2

REPORT INFORMATION
  Report Type: 
  Country: None (occurrence: None)
  Receive Date: 20050613
  Receipt Date: 20050531
  Transmission Date: 20051028
  Serious: Yes (Other)
  Sender: FDA-Public Use
  Company Number: CA-GLAXOSMITHKLINE-A0561480A

PATIENT
  Age: 25 Year
  Sex: Female

DRUGS (5)
  1. PAXIL [Suspect]
     Indication: DRUG USE FOR UNKNOWN INDICATION
     Dosage: 600MG UNKNOWN
     Route: 048
  2. VALIUM [Suspect]
     Route: 048
  3. NYQUIL [Suspect]
  4. NAPROXEN SODIUM [Suspect]
  5. ADVIL [Suspect]

REACTIONS (3)
  - OVERDOSE [None]
  - SOMNOLENCE [None]
  - SUICIDE ATTEMPT [None]
